FAERS Safety Report 13965389 (Version 1)
Quarter: 2017Q3

REPORT INFORMATION
  Report Type: Spontaneous
  Country: US (occurrence: US)
  Receive Date: 20170913
  Receipt Date: 20170913
  Transmission Date: 20171128
  Serious: No
  Sender: FDA-Public Use
  Company Number: US-VIVUS, INC.-2016V1000386

PATIENT
  Age: 68 Year
  Sex: Female
  Weight: 97.61 kg

DRUGS (8)
  1. OMEPRAZOLE. [Concomitant]
     Active Substance: OMEPRAZOLE
     Indication: GASTROOESOPHAGEAL REFLUX DISEASE
     Route: 048
  2. TORASEMIDE [Concomitant]
     Active Substance: TORSEMIDE
     Indication: BLOOD PRESSURE SYSTOLIC INCREASED
     Route: 048
  3. COZAAR [Concomitant]
     Active Substance: LOSARTAN POTASSIUM
     Indication: BLOOD PRESSURE SYSTOLIC INCREASED
     Route: 048
  4. QSYMIA [Suspect]
     Active Substance: PHENTERMINE HYDROCHLORIDE\TOPIRAMATE
     Indication: WEIGHT DECREASED
     Route: 048
     Dates: start: 2016
  5. QSYMIA [Suspect]
     Active Substance: PHENTERMINE HYDROCHLORIDE\TOPIRAMATE
     Indication: WEIGHT DECREASED
     Route: 048
     Dates: start: 201610
  6. BISOPROLOL [Concomitant]
     Active Substance: BISOPROLOL
     Indication: BLOOD PRESSURE SYSTOLIC INCREASED
     Route: 048
  7. HCTZ [Concomitant]
     Active Substance: HYDROCHLOROTHIAZIDE
     Indication: BLOOD PRESSURE SYSTOLIC INCREASED
     Route: 048
  8. CARDIA [Concomitant]
     Active Substance: AJMALINE
     Indication: BLOOD PRESSURE SYSTOLIC INCREASED
     Route: 048

REACTIONS (1)
  - Nausea [Not Recovered/Not Resolved]

NARRATIVE: CASE EVENT DATE: 201612
